FAERS Safety Report 7245765-9 (Version None)
Quarter: 2011Q1

REPORT INFORMATION
  Report Type: 
  Country: None (occurrence: None)
  Receive Date: 20110126
  Receipt Date: 20110124
  Transmission Date: 20110831
  Serious: Yes (Other)
  Sender: FDA-Public Use
  Company Number: US-PFIZER INC-2011016804

PATIENT
  Age: 85 Year
  Sex: Female
  Weight: 62.1 kg

DRUGS (5)
  1. BENADRYL [Suspect]
     Indication: SLEEP DISORDER
     Dosage: ONE TABLET PER DAY
     Route: 048
     Dates: start: 20091201, end: 20101130
  2. CARVEDILOL [Suspect]
     Indication: BLOOD PRESSURE
     Dosage: 6.25 MG, 1X/DAY
  3. ACETYLSALICYLIC ACID [Concomitant]
     Dosage: 81 MG, 1X/DAY
  4. AMLODIPINE BESYLATE [Suspect]
     Indication: BLOOD PRESSURE
     Dosage: 5 MG, 2X/DAY
     Route: 048
  5. MICARDIS [Suspect]
     Dosage: 80 MG, 1X/DAY

REACTIONS (1)
  - SYNCOPE [None]
